FAERS Safety Report 19565897 (Version 2)
Quarter: 2021Q3

REPORT INFORMATION
  Report Type: Spontaneous
  Country: US (occurrence: US)
  Receive Date: 20210714
  Receipt Date: 20210730
  Transmission Date: 20211014
  Serious: Yes (Other)
  Sender: FDA-Public Use
  Company Number: US-BAYER-2021-170939

PATIENT
  Age: 28 Year
  Sex: Male

DRUGS (1)
  1. JIVI [Suspect]
     Active Substance: DAMOCTOCOG ALFA PEGOL
     Dosage: 3756 U, UNK
     Route: 042

REACTIONS (2)
  - Haemorrhage [Recovering/Resolving]
  - Haemorrhage [None]

NARRATIVE: CASE EVENT DATE: 20210704
